FAERS Safety Report 8008256-3 (Version None)
Quarter: 2011Q4

REPORT INFORMATION
  Report Type: 
  Country: None (occurrence: None)
  Receive Date: 20111227
  Receipt Date: 20111221
  Transmission Date: 20120403
  Serious: Yes (Death, Other)
  Sender: FDA-Public Use
  Company Number: US-ROCHE-757989

PATIENT
  Sex: Female
  Weight: 80.812 kg

DRUGS (6)
  1. GEMZAR [Concomitant]
     Dates: start: 20080116, end: 20090130
  2. ZOMETA [Concomitant]
     Dates: start: 20080201, end: 20090101
  3. NAVELBINE [Concomitant]
  4. AVASTIN [Suspect]
     Indication: BREAST CANCER METASTATIC
     Dosage: Q 2 WEEKS
     Route: 042
     Dates: start: 20090415, end: 20090901
  5. XELODA [Suspect]
     Indication: BREAST CANCER METASTATIC
     Route: 048
     Dates: start: 20071009, end: 20090101
  6. TAXOL [Concomitant]
     Dates: start: 20090415, end: 20090901

REACTIONS (2)
  - NEOPLASM MALIGNANT [None]
  - DEATH [None]
